FAERS Safety Report 8586387-7 (Version None)
Quarter: 2012Q3

REPORT INFORMATION
  Report Type: 
  Country: None (occurrence: None)
  Receive Date: 20120810
  Receipt Date: 20120806
  Transmission Date: 20120928
  Serious: No
  Sender: FDA-Public Use
  Company Number: US-PFIZER INC-2012092666

PATIENT
  Age: 61 Year
  Sex: Male

DRUGS (2)
  1. INSULIN [Suspect]
     Dosage: UNK
  2. CELEBREX [Suspect]
     Dosage: 200 MG BID AS NEEDED
     Route: 048

REACTIONS (2)
  - DISTURBANCE IN ATTENTION [None]
  - FEELING ABNORMAL [None]
